FAERS Safety Report 6001687-2 (Version None)
Quarter: 2008Q4

REPORT INFORMATION
  Report Type: 
  Country: None (occurrence: None)
  Receive Date: 20081215
  Receipt Date: 20081202
  Transmission Date: 20090506
  Serious: No
  Sender: FDA-Public Use
  Company Number: US-B.I. PHARMACEUTICALS,INC./RIDGEFIELD-2008-BP-15366BP

PATIENT
  Age: 84 Year
  Sex: Female

DRUGS (7)
  1. ATROVENT HFA [Suspect]
     Indication: EMPHYSEMA
     Dosage: 102MCG
     Route: 055
     Dates: start: 20040101
  2. ADVAIR DISKUS 250/50 [Concomitant]
     Indication: DYSPNOEA
     Dates: start: 20030101
  3. PROCARDIA [Concomitant]
     Indication: BLOOD PRESSURE
     Dates: start: 19910101
  4. PREDNISONE TAB [Concomitant]
     Indication: DYSPNOEA
  5. HRT [Concomitant]
     Indication: HORMONE REPLACEMENT THERAPY
  6. ASPIRIN [Concomitant]
     Indication: CEREBROVASCULAR ACCIDENT PROPHYLAXIS
  7. CIPRO [Concomitant]
     Indication: BLADDER DISORDER
     Dates: start: 20080915

REACTIONS (5)
  - DRUG EFFECT DECREASED [None]
  - DRUG INEFFECTIVE [None]
  - DRY MOUTH [None]
  - DYSGEUSIA [None]
  - DYSPNOEA [None]
